FAERS Safety Report 5006639-7 (Version None)
Quarter: 2006Q2

REPORT INFORMATION
  Report Type: 
  Country: None (occurrence: None)
  Receive Date: 20060516
  Receipt Date: 20060504
  Transmission Date: 20061013
  Serious: Yes (Hospitalization)
  Sender: FDA-Public Use
  Company Number: FR200605000829

PATIENT
  Age: 65 Year
  Sex: Female

DRUGS (7)
  1. PROZAC [Suspect]
     Indication: DEPRESSION
     Dosage: 20 MG, DAILY (1/D), ORAL
     Route: 048
     Dates: start: 20050115, end: 20050223
  2. ABILIFY [Concomitant]
  3. ATARAX [Concomitant]
  4. KARDEGIC /FRA/ (ACETYLSALICYLATE LYSINE) [Concomitant]
  5. COAPROVEL /GFR/ (HYDROCHLOROTHIAZIDE, IRBESARTAN) [Concomitant]
  6. HYPERIUM (RILMENIDINE) [Concomitant]
  7. DUPHALAC /NET/ (LACTULOSE) [Concomitant]

REACTIONS (3)
  - CONVULSION [None]
  - FALL [None]
  - LOSS OF CONSCIOUSNESS [None]
